FAERS Safety Report 9270728 (Version 1)
Quarter: 2013Q2

REPORT INFORMATION
  Report Type: Spontaneous
  Country: US (occurrence: US)
  Receive Date: 20130503
  Receipt Date: 20130503
  Transmission Date: 20140414
  Serious: No
  Sender: FDA-Public Use
  Company Number: US-ASTRAZENECA-2013SE26950

PATIENT
  Age: 69 Year
  Sex: Female
  Weight: 95.3 kg

DRUGS (7)
  1. CRESTOR [Suspect]
     Route: 048
     Dates: start: 201212
  2. PLAVIX [Concomitant]
     Indication: STENT PLACEMENT
  3. BYSTOLIC [Concomitant]
     Indication: STENT PLACEMENT
  4. BENICAR [Concomitant]
     Indication: BLOOD PRESSURE ABNORMAL
  5. PANTOPRAZOLE [Concomitant]
     Indication: GASTRIC DISORDER
  6. LEVOTHYROXIN [Concomitant]
  7. ASPIRIN [Concomitant]

REACTIONS (3)
  - Alopecia [Not Recovered/Not Resolved]
  - Blood triglycerides decreased [Unknown]
  - Hearing impaired [Not Recovered/Not Resolved]
